FAERS Safety Report 7130543-1 (Version None)
Quarter: 2010Q4

REPORT INFORMATION
  Report Type: 
  Country: None (occurrence: None)
  Receive Date: 20101201
  Receipt Date: 20101119
  Transmission Date: 20110411
  Serious: Yes (Other)
  Sender: FDA-Public Use
  Company Number: CH-PFIZER INC-2010160223

PATIENT
  Sex: Male

DRUGS (1)
  1. PANTOZOL [Suspect]
     Dosage: 20 MG, DAILY

REACTIONS (1)
  - COLITIS ULCERATIVE [None]
